FAERS Safety Report 17400616 (Version 1)
Quarter: 2020Q1

REPORT INFORMATION
  Report Type: Spontaneous
  Country: US (occurrence: US)
  Receive Date: 20200208
  Receipt Date: 20200208
  Transmission Date: 20200409
  Serious: Yes (Hospitalization)
  Sender: FDA-Public Use
  Company Number: None

PATIENT
  Age: 55 Year
  Sex: Female
  Weight: 54 kg

DRUGS (2)
  1. BISACODYL EC 5 MG TABLET [Suspect]
     Active Substance: BISACODYL
     Indication: COLONOSCOPY
     Dosage: ?          QUANTITY:4 TABLET(S);?
     Route: 048
     Dates: start: 20200116, end: 20200116
  2. GAVILYTE G [Suspect]
     Active Substance: POLYETHYLENE GLYCOL 3350\POTASSIUM CHLORIDE\SODIUM BICARBONATE\SODIUM CHLORIDE\SODIUM SULFATE ANHYDROUS
     Indication: COLONOSCOPY
     Dosage: ?          QUANTITY:4000 ML;?
     Route: 048
     Dates: start: 20200116, end: 20200117

REACTIONS (1)
  - Atrial fibrillation [None]

NARRATIVE: CASE EVENT DATE: 20200117
